FAERS Safety Report 11842426 (Version 1)
Quarter: 2015Q4

REPORT INFORMATION
  Report Type: Report from Study
  Country: AU (occurrence: AU)
  Receive Date: 20151216
  Receipt Date: 20151216
  Transmission Date: 20160305
  Serious: Yes (Life-Threatening, Other)
  Sender: FDA-Public Use
  Company Number: AU-INCYTE CORPORATION-2015IN006628

PATIENT
  Age: 67 Year
  Sex: Female

DRUGS (1)
  1. JAKAFI [Suspect]
     Active Substance: RUXOLITINIB
     Indication: PRIMARY MYELOFIBROSIS
     Route: 065

REACTIONS (18)
  - Amnesia [Unknown]
  - General physical health deterioration [Unknown]
  - Malaise [Unknown]
  - Drug ineffective [Unknown]
  - Dyspnoea [Unknown]
  - Blood disorder [Unknown]
  - Terminal state [Unknown]
  - Hepatomegaly [Unknown]
  - Bone marrow disorder [Unknown]
  - Bone disorder [Unknown]
  - Arthropathy [Unknown]
  - Heart rate increased [Unknown]
  - Haemoglobin decreased [Unknown]
  - Headache [Unknown]
  - Hypoxia [Unknown]
  - Myelofibrosis [Unknown]
  - Fatigue [Unknown]
  - Dizziness [Unknown]
